FAERS Safety Report 5275555-8 (Version None)
Quarter: 2007Q1

REPORT INFORMATION
  Report Type: 
  Country: None (occurrence: None)
  Receive Date: 20061213
  Receipt Date: 20051205
  Transmission Date: 20070707
  Serious: Yes (Life-Threatening)
  Sender: FDA-Public Use
  Company Number: 2005UW14773

PATIENT
  Age: 26 Year
  Sex: Female

DRUGS (4)
  1. SEROQUEL [Suspect]
     Indication: BIPOLAR DISORDER
     Dosage: 200 MG TID; PO
     Route: 048
     Dates: start: 20050430
  2. SEROQUEL [Suspect]
     Indication: BIPOLAR DISORDER
     Dosage: 200 MG BID;PO
     Route: 048
     Dates: end: 20050620
  3. ALPRAZOLAM [Concomitant]
  4. FIORICET [Concomitant]

REACTIONS (1)
  - CONVULSION [None]
